FAERS Safety Report 8043322-8 (Version None)
Quarter: 2012Q1

REPORT INFORMATION
  Report Type: 
  Country: None (occurrence: None)
  Receive Date: 20120112
  Receipt Date: 20111216
  Transmission Date: 20120608
  Serious: Yes (Life-Threatening)
  Sender: FDA-Public Use
  Company Number: FR-GLAXOSMITHKLINE-B0769838A

PATIENT
  Sex: Female
  Weight: 83 kg

DRUGS (6)
  1. ARIXTRA [Suspect]
     Indication: DEEP VEIN THROMBOSIS
     Route: 058
     Dates: start: 20111031, end: 20111108
  2. LEVOTHYROXINE SODIUM [Concomitant]
  3. BROMAZEPAM [Concomitant]
  4. ALDALIX [Concomitant]
  5. AUGMENTIN '125' [Concomitant]
     Indication: ERYSIPELAS
     Dosage: 3G PER DAY
     Route: 048
     Dates: start: 20111031, end: 20111115
  6. PROPRANOLOL [Concomitant]

REACTIONS (2)
  - HAEMATOMA [None]
  - HAEMOGLOBIN DECREASED [None]
